FAERS Safety Report 11710378 (Version 1)
Quarter: 2015Q4

REPORT INFORMATION
  Report Type: Spontaneous
  Country: US (occurrence: US)
  Receive Date: 20151104
  Receipt Date: 20151104
  Transmission Date: 20160304
  Serious: No
  Sender: FDA-Public Use
  Company Number: US-ELI_LILLY_AND_COMPANY-US201103003228

PATIENT
  Sex: Female

DRUGS (1)
  1. FORTEO [Suspect]
     Active Substance: TERIPARATIDE
     Indication: OSTEOPOROSIS
     Dosage: 20 UG, DAILY (1/D)
     Dates: start: 20101230

REACTIONS (15)
  - Inhibitory drug interaction [Unknown]
  - Thinking abnormal [Unknown]
  - Dyspepsia [Unknown]
  - Hypersomnia [Unknown]
  - Apathy [Unknown]
  - Abdominal pain lower [Unknown]
  - Depression [Unknown]
  - Mental disorder [Not Recovered/Not Resolved]
  - Anxiety [Unknown]
  - Pain in extremity [Unknown]
  - Sensory disturbance [Not Recovered/Not Resolved]
  - Panic attack [Unknown]
  - Pain [Unknown]
  - Arthralgia [Unknown]
  - Constipation [Unknown]
